FAERS Safety Report 5118262-4 (Version None)
Quarter: 2006Q4

REPORT INFORMATION
  Report Type: 
  Country: None (occurrence: None)
  Receive Date: 20061002
  Receipt Date: 20060724
  Transmission Date: 20070319
  Serious: No
  Sender: FDA-Public Use
  Company Number: US-BRISTOL-MYERS SQUIBB COMPANY-13451620

PATIENT
  Age: 46 Year
  Sex: Female
  Weight: 94 kg

DRUGS (4)
  1. ORENCIA [Suspect]
     Indication: RHEUMATOID ARTHRITIS
     Route: 042
     Dates: start: 20060401
  2. ZINC [Concomitant]
     Dates: start: 20060101
  3. HYDROXYCHLOROQUINE SULFATE [Concomitant]
     Dates: start: 20060201
  4. CLARITIN [Concomitant]

REACTIONS (2)
  - NASAL CONGESTION [None]
  - ORAL INFECTION [None]
